FAERS Safety Report 10012513 (Version 1)
Quarter: 2014Q1

REPORT INFORMATION
  Report Type: Report from Study
  Country: CA (occurrence: CA)
  Receive Date: 20140314
  Receipt Date: 20140314
  Transmission Date: 20141002
  Serious: Yes (Hospitalization)
  Sender: FDA-Public Use
  Company Number: CA-BRISTOL-MYERS SQUIBB COMPANY-20400974

PATIENT
  Age: 78 Year
  Sex: Male

DRUGS (8)
  1. ORENCIA [Suspect]
     Indication: RHEUMATOID ARTHRITIS
     Dosage: 1DF: 750 UNITS NOS
     Dates: start: 20070525
  2. METHOTREXATE [Concomitant]
  3. PREDNISOLONE [Concomitant]
  4. DIDROCAL [Concomitant]
  5. TYLENOL [Concomitant]
  6. CODEINE [Concomitant]
  7. CODEINE [Concomitant]
  8. SALBUTAMOL [Concomitant]

REACTIONS (2)
  - Pneumonia [Unknown]
  - Loss of consciousness [Unknown]
